FAERS Safety Report 8339055-0 (Version None)
Quarter: 2012Q2

REPORT INFORMATION
  Report Type: 
  Country: None (occurrence: None)
  Receive Date: 20120502
  Receipt Date: 20120419
  Transmission Date: 20120825
  Serious: Yes (Other)
  Sender: FDA-Public Use
  Company Number: 1204-205

PATIENT
  Age: 72 Year
  Sex: Female

DRUGS (1)
  1. EYLEA [Suspect]
     Dosage: 2 MG
     Dates: start: 20120203

REACTIONS (1)
  - RETINAL OEDEMA [None]
